FAERS Safety Report 21799218 (Version 1)
Quarter: 2022Q4

REPORT INFORMATION
  Report Type: Spontaneous
  Country: US (occurrence: None)
  Receive Date: 20221229
  Receipt Date: 20221229
  Transmission Date: 20230112
  Serious: No
  Sender: FDA-Public Use
  Company Number: None

PATIENT
  Age: 70 Year
  Sex: Male
  Weight: 66.36 kg

DRUGS (13)
  1. LENALIDOMIDE [Suspect]
     Active Substance: LENALIDOMIDE
     Indication: Plasma cell myeloma
     Dosage: OTHER FREQUENCY : 3W,1WOFF;?
     Route: 048
  2. CETIRIZINE [Concomitant]
  3. ISOSORBIDE [Concomitant]
  4. MONONITRATE [Concomitant]
  5. LEVOTHYROXINE [Concomitant]
  6. SODIUM [Concomitant]
  7. MIRALAX [Concomitant]
  8. OXYCODONE [Concomitant]
  9. PROTONIX [Concomitant]
  10. ASPIRIN [Concomitant]
  11. SODIUM BICARBONATE [Concomitant]
  12. TRAZODONE [Concomitant]
  13. VITAMIN D3 [Concomitant]
     Active Substance: CHOLECALCIFEROL

REACTIONS (2)
  - Full blood count decreased [None]
  - Therapy interrupted [None]
